FAERS Safety Report 9419449 (Version 1)
Quarter: 2013Q3

REPORT INFORMATION
  Report Type: Spontaneous
  Country: CA (occurrence: CA)
  Receive Date: 20130725
  Receipt Date: 20130725
  Transmission Date: 20140515
  Serious: Yes (Hospitalization)
  Sender: FDA-Public Use
  Company Number: CA-AMGEN-CANSP2013051586

PATIENT
  Age: 50 Year
  Sex: Female

DRUGS (2)
  1. NEUPOGEN [Suspect]
     Indication: BREAST CANCER
     Dosage: 1ML/300 MCG, UNK
     Route: 065
     Dates: start: 20130710, end: 20130714
  2. CHEMOTHERAPEUTICS [Concomitant]
     Indication: BREAST CANCER
     Dosage: UNK
     Dates: start: 20130708

REACTIONS (3)
  - Pyrexia [Recovered/Resolved]
  - White blood cell count abnormal [Unknown]
  - Bone pain [Recovered/Resolved]
